FAERS Safety Report 15087755 (Version 1)
Quarter: 2018Q2

REPORT INFORMATION
  Report Type: Spontaneous
  Country: US (occurrence: US)
  Receive Date: 20180629
  Receipt Date: 20180629
  Transmission Date: 20180711
  Serious: No
  Sender: FDA-Public Use
  Company Number: US-ASTRAZENECA-2018SE83135

PATIENT
  Sex: Male

DRUGS (1)
  1. NEXIUM 24HR [Suspect]
     Active Substance: ESOMEPRAZOLE MAGNESIUM
     Dosage: 20 MG, 1X/DAY (20MG ONCE PER DAY WITH BREAKFAST)
     Route: 048

REACTIONS (4)
  - Discomfort [Unknown]
  - Dyspepsia [Recovered/Resolved]
  - Chest pain [Unknown]
  - Cough [Unknown]
